FAERS Safety Report 19451010 (Version 1)
Quarter: 2021Q2

REPORT INFORMATION
  Report Type: Spontaneous
  Country: CA (occurrence: CA)
  Receive Date: 20210622
  Receipt Date: 20210622
  Transmission Date: 20210717
  Serious: Yes (Other)
  Sender: FDA-Public Use
  Company Number: CA-BAYER-2021-158145

PATIENT
  Age: 47 Year
  Sex: Male

DRUGS (6)
  1. PENICILLIN V [PHENOXYMETHYLPENICILLIN] [Suspect]
     Active Substance: PENICILLIN V
     Indication: HIDRADENITIS
     Dosage: UNK
     Route: 065
  2. CEPHALEXIN [CEFALEXIN] [Suspect]
     Active Substance: CEPHALEXIN
     Indication: HIDRADENITIS
     Dosage: UNK
     Route: 065
  3. TETRACYCLINE [Suspect]
     Active Substance: TETRACYCLINE
     Indication: HIDRADENITIS
     Dosage: UNK
     Route: 065
  4. CIPRO [Suspect]
     Active Substance: CIPROFLOXACIN HYDROCHLORIDE
     Indication: HIDRADENITIS
     Dosage: UNK
  5. ISOTRETINOIN. [Suspect]
     Active Substance: ISOTRETINOIN
     Indication: HIDRADENITIS
     Dosage: UNK
     Route: 065
  6. CLOXACILLIN [Suspect]
     Active Substance: CLOXACILLIN
     Indication: HIDRADENITIS
     Dosage: UNK
     Route: 065

REACTIONS (3)
  - Hidradenitis [Unknown]
  - Product use in unapproved indication [None]
  - Disease progression [Unknown]
